FAERS Safety Report 17786705 (Version 2)
Quarter: 2021Q4

REPORT INFORMATION
  Report Type: Spontaneous
  Country: HR (occurrence: HR)
  Receive Date: 20200514
  Receipt Date: 20211223
  Transmission Date: 20220303
  Serious: Yes (Other)
  Sender: FDA-Public Use
  Company Number: HR-NOVARTISPH-NVSC2020HR124790

PATIENT
  Age: 17 Year
  Sex: Male

DRUGS (2)
  1. ADALIMUMAB [Suspect]
     Active Substance: ADALIMUMAB
     Indication: Juvenile idiopathic arthritis
     Dosage: 40 MG, BIW
     Route: 058
  2. METHOTREXATE [Suspect]
     Active Substance: METHOTREXATE
     Indication: Juvenile idiopathic arthritis
     Dosage: UNK (INITIALLY RECEIVED FOR ALMOST 10 YEARS THEN DISCONTINUED)
     Route: 065

REACTIONS (5)
  - Lymphadenopathy mediastinal [Recovering/Resolving]
  - Interstitial lung disease [Recovering/Resolving]
  - Weight decreased [Recovering/Resolving]
  - Psoriasis [Recovering/Resolving]
  - Secondary immunodeficiency [Unknown]
